FAERS Safety Report 6958965-X (Version None)
Quarter: 2010Q3

REPORT INFORMATION
  Report Type: 
  Country: None (occurrence: None)
  Receive Date: 20100831
  Receipt Date: 20100820
  Transmission Date: 20110219
  Serious: Yes (Hospitalization)
  Sender: FDA-Public Use
  Company Number: ES-PFIZER INC-2010105799

PATIENT
  Age: 93 Year
  Sex: Female

DRUGS (4)
  1. ALDACTONE [Suspect]
     Indication: CARDIAC FAILURE
     Dosage: 5 MG, 1X/DAY
     Route: 048
     Dates: start: 20080101, end: 20100115
  2. SINEMET [Concomitant]
     Indication: PARKINSON'S DISEASE
     Dosage: UNK
     Route: 048
     Dates: start: 20080101
  3. OMEPRAZOLE [Concomitant]
     Indication: GASTRITIS ATROPHIC
     Dosage: 20 MG, 1X/DAY
     Route: 048
     Dates: start: 20090101
  4. PARACETAMOL [Concomitant]
     Indication: ARTHRALGIA
     Dosage: 2 G, 1X/DAY
     Route: 048
     Dates: start: 20090101

REACTIONS (2)
  - ATRIOVENTRICULAR BLOCK COMPLETE [None]
  - HYPERKALAEMIA [None]
